FAERS Safety Report 8742098 (Version 4)
Quarter: 2014Q2

REPORT INFORMATION
  Report Type: Spontaneous
  Country: BR (occurrence: BR)
  Receive Date: 20120824
  Receipt Date: 20131018
  Transmission Date: 20141212
  Serious: Yes (Hospitalization)
  Sender: FDA-Public Use
  Company Number: BR-PFIZER INC-2012206107

PATIENT
  Age: 72 Year
  Sex: Female
  Weight: 66 kg

DRUGS (6)
  1. ATENOLOL [Suspect]
     Indication: HYPERTENSION
     Dosage: 25 MG, 2X/DAY
     Route: 048
     Dates: start: 201203
  2. BENICAR HCT [Suspect]
     Indication: HYPERTENSION
     Dosage: 10/12,5 MG DAILY
     Route: 048
     Dates: end: 201203
  3. CRESTOR [Suspect]
     Indication: BLOOD CHOLESTEROL INCREASED
     Dosage: 10 MG, DAILY
     Route: 048
     Dates: end: 201203
  4. CRESTOR [Suspect]
     Dosage: 40 MG, UNK
     Route: 048
  5. SYNTHROID [Concomitant]
     Indication: HYPOTHYROIDISM
     Dosage: 88 UG, UNK
     Route: 048
  6. DIGEPLUS [Concomitant]
     Indication: REFLUX GASTRITIS
     Route: 048

REACTIONS (3)
  - Angina pectoris [Recovered/Resolved]
  - Blood cholesterol increased [Recovered/Resolved]
  - Off label use [Not Recovered/Not Resolved]
